FAERS Safety Report 20407190 (Version 2)
Quarter: 2022Q4

REPORT INFORMATION
  Report Type: Spontaneous
  Country: US (occurrence: US)
  Receive Date: 20220131
  Receipt Date: 20221117
  Transmission Date: 20230113
  Serious: Yes (Other)
  Sender: FDA-Public Use
  Company Number: US-PFIZER INC-202101513662

PATIENT
  Age: 70 Year
  Sex: Female

DRUGS (2)
  1. XELJANZ [Suspect]
     Active Substance: TOFACITINIB CITRATE
     Indication: Rheumatoid arthritis
     Dosage: 5 MG, 2X/DAY
     Dates: start: 201710
  2. XELJANZ [Suspect]
     Active Substance: TOFACITINIB CITRATE
     Indication: Rheumatoid arthritis

REACTIONS (13)
  - Fibula fracture [Unknown]
  - Ligament sprain [Unknown]
  - Therapeutic product effect incomplete [Unknown]
  - Flank pain [Unknown]
  - Myalgia [Unknown]
  - Sleep disorder [Unknown]
  - Dry eye [Unknown]
  - Hypoaesthesia [Unknown]
  - Pain in extremity [Unknown]
  - Bronchitis [Unknown]
  - Joint swelling [Unknown]
  - Peripheral swelling [Unknown]
  - Gait disturbance [Unknown]
